FAERS Safety Report 7377596-3 (Version None)
Quarter: 2011Q1

REPORT INFORMATION
  Report Type: 
  Country: None (occurrence: None)
  Receive Date: 20110328
  Receipt Date: 20110321
  Transmission Date: 20110831
  Serious: Yes (Hospitalization)
  Sender: FDA-Public Use
  Company Number: FR-BRISTOL-MYERS SQUIBB COMPANY-15628936

PATIENT
  Age: 60 Year
  Sex: Female

DRUGS (6)
  1. NOCTAMIDE [Concomitant]
     Dosage: 1DF=0.5 UNITS NOT SPECIFIED.NOCTAMIDE 1 MG.
  2. SULFARLEM [Concomitant]
  3. ABILIFY [Suspect]
     Indication: BIPOLAR I DISORDER
     Route: 048
     Dates: start: 20100521, end: 20101001
  4. DEROXAT [Suspect]
     Indication: BIPOLAR I DISORDER
     Dosage: 1DF=1 TAB,DEROXAT 20 MG (PAROXETINE)
     Route: 048
     Dates: end: 20101105
  5. TRIMEPRAZINE TARTRATE [Concomitant]
  6. DEPAKOTE [Suspect]
     Indication: BIPOLAR I DISORDER
     Route: 048
     Dates: start: 20050101

REACTIONS (1)
  - RENAL FAILURE ACUTE [None]
